FAERS Safety Report 6024105-7 (Version None)
Quarter: 2008Q4

REPORT INFORMATION
  Report Type: 
  Country: None (occurrence: None)
  Receive Date: 20081224
  Receipt Date: 20081218
  Transmission Date: 20090506
  Serious: Yes (Death, Hospitalization)
  Sender: FDA-Public Use
  Company Number: POMP-1000430

PATIENT
  Age: 23 Year
  Sex: Male
  Weight: 25.6 kg

DRUGS (2)
  1. MYOZYME [Suspect]
     Indication: GLYCOGEN STORAGE DISEASE TYPE II
     Dosage: 20 MG/KG, Q2W, INTRAVENOUS, 20 MG/KG, Q2W, INTRAVENOUS
     Route: 042
     Dates: start: 20041201, end: 20060701
  2. MYOZYME [Suspect]
     Indication: GLYCOGEN STORAGE DISEASE TYPE II
     Dosage: 20 MG/KG, Q2W, INTRAVENOUS, 20 MG/KG, Q2W, INTRAVENOUS
     Route: 042
     Dates: start: 20060714, end: 20081219

REACTIONS (9)
  - ATRIAL FIBRILLATION [None]
  - BLOOD GLUCOSE INCREASED [None]
  - BLOOD POTASSIUM DECREASED [None]
  - BLOOD PRESSURE DECREASED [None]
  - BRADYCARDIA [None]
  - BUNDLE BRANCH BLOCK LEFT [None]
  - COMA [None]
  - RESPIRATORY ARREST [None]
  - RESPIRATORY DISTRESS [None]
